FAERS Safety Report 9686271 (Version 1)
Quarter: 2013Q4

REPORT INFORMATION
  Report Type: Spontaneous
  Country: RS (occurrence: RS)
  Receive Date: 20131113
  Receipt Date: 20131113
  Transmission Date: 20140711
  Serious: Yes (Hospitalization, Other)
  Sender: FDA-Public Use
  Company Number: PHHY2013RS126500

PATIENT
  Age: 38 Year
  Sex: Female

DRUGS (2)
  1. VERAPAMIL [Suspect]
     Dosage: 5.6 G, UNK
  2. DIAZEPAM [Suspect]
     Dosage: 150 MG, UNK

REACTIONS (5)
  - Toxicity to various agents [Recovering/Resolving]
  - Anuria [Unknown]
  - Bradycardia [Recovering/Resolving]
  - Hypotension [Recovered/Resolved]
  - Overdose [Unknown]
